FAERS Safety Report 4401145-2 (Version None)
Quarter: 2004Q3

REPORT INFORMATION
  Report Type: 
  Country: None (occurrence: None)
  Receive Date: 20040907
  Receipt Date: 20031118
  Transmission Date: 20050211
  Serious: Yes (Hospitalization)
  Sender: FDA-Public Use
  Company Number: US-BRISTOL-MYERS SQUIBB COMPANY-12438719

PATIENT
  Age: 71 Year
  Sex: Male
  Weight: 86 kg

DRUGS (8)
  1. COUMADIN [Suspect]
     Indication: THROMBOSIS PROPHYLAXIS
  2. LUPRON [Concomitant]
     Indication: HORMONE LEVEL ABNORMAL
     Route: 051
  3. CASODEX [Concomitant]
     Indication: HORMONE LEVEL ABNORMAL
     Dosage: DOSE: 1 TABLET DAILY
  4. LIPITOR [Concomitant]
  5. WELCHOL [Concomitant]
  6. PREVACID [Concomitant]
     Dosage: DOSE : 1 TABLET DAILY
  7. MULTI-VITAMINS [Concomitant]
     Dosage: DOSE: 1 TABLET DAILY
  8. LYSINE [Concomitant]

REACTIONS (1)
  - BLOOD URINE [None]
